FAERS Safety Report 6641550-7 (Version None)
Quarter: 2010Q1

REPORT INFORMATION
  Report Type: 
  Country: None (occurrence: None)
  Receive Date: 20100317
  Receipt Date: 20100317
  Transmission Date: 20100710
  Serious: Yes (Death)
  Sender: FDA-Public Use
  Company Number: None

PATIENT
  Age: 75 Year
  Sex: Female
  Weight: 57 kg

DRUGS (9)
  1. LEPIRUDIN [Suspect]
     Indication: HEPARIN-INDUCED THROMBOCYTOPENIA
     Dosage: 0.15MG/KG/HR CONTINUOUS IV INFUSION 1/25 0030 - 1/25 0800
     Route: 042
     Dates: start: 20100125, end: 20100125
  2. ATORVASTATIN CALCIUM [Concomitant]
  3. LANSOPRAZOLE [Concomitant]
  4. LEPARIN [Concomitant]
  5. ASPIRIN [Concomitant]
  6. METRONIDAZOLE [Concomitant]
  7. CEFEPIME [Concomitant]
  8. PHENYLEPHRINE [Concomitant]
  9. FENTANYL [Concomitant]

REACTIONS (4)
  - ACTIVATED PARTIAL THROMBOPLASTIN TIME PROLONGED [None]
  - BLOOD PRESSURE ABNORMAL [None]
  - HAEMOGLOBIN DECREASED [None]
  - OXYGEN SATURATION ABNORMAL [None]
